FAERS Safety Report 21151145 (Version 2)
Quarter: 2022Q4

REPORT INFORMATION
  Report Type: Report from Study
  Country: US (occurrence: US)
  Receive Date: 20220730
  Receipt Date: 20221014
  Transmission Date: 20230113
  Serious: Yes (Other)
  Sender: FDA-Public Use
  Company Number: US-BRISTOL-MYERS SQUIBB COMPANY-2022-078573

PATIENT
  Age: 64 Year
  Sex: Male
  Weight: 109.77 kg

DRUGS (9)
  1. REVLIMID [Suspect]
     Active Substance: LENALIDOMIDE
     Indication: Plasma cell myeloma in remission
     Dosage: TAKE 1 CAPSULE EVERY MORNING (CYCLE LENGTH IS 28 DAYS).
     Route: 048
     Dates: start: 201805
  2. REVLIMID [Suspect]
     Active Substance: LENALIDOMIDE
     Indication: Plasma cell myeloma
  3. NORVASC [Suspect]
     Active Substance: AMLODIPINE BESYLATE
     Indication: Product used for unknown indication
     Route: 065
  4. NORVASC [Suspect]
     Active Substance: AMLODIPINE BESYLATE
     Route: 065
  5. HYDROCHLOROTHIAZIDE\LOSARTAN [Concomitant]
     Active Substance: HYDROCHLOROTHIAZIDE\LOSARTAN
  6. ASPIRIN [Concomitant]
     Active Substance: ASPIRIN
  7. LORATADINE [Concomitant]
     Active Substance: LORATADINE
  8. ACYCLOVIR [Concomitant]
     Active Substance: ACYCLOVIR
  9. MORPHINE [Concomitant]
     Active Substance: MORPHINE

REACTIONS (2)
  - Nervousness [Unknown]
  - Hypertension [Unknown]
